FAERS Safety Report 16345784 (Version 1)
Quarter: 2019Q2

REPORT INFORMATION
  Report Type: Spontaneous
  Country: DE (occurrence: DE)
  Receive Date: 20190523
  Receipt Date: 20190523
  Transmission Date: 20190711
  Serious: Yes (Other)
  Sender: FDA-Public Use
  Company Number: DE-HIKMA PHARMACEUTICALS USA INC.-DE-H14001-19-03438

PATIENT
  Age: 82 Year
  Sex: Male
  Weight: 94 kg

DRUGS (3)
  1. MOXIFLOXACIN. [Suspect]
     Active Substance: MOXIFLOXACIN
     Indication: PRODUCT USED FOR UNKNOWN INDICATION
     Dosage: STARTING WITH 250 MG, 2015 NO LONGER EFFECTIVE, INCREASE TO 500 MG
     Dates: start: 2012, end: 2017
  2. METFORMIN [Concomitant]
     Active Substance: METFORMIN HYDROCHLORIDE
     Indication: TYPE 2 DIABETES MELLITUS
  3. CIPROFLOXACIN. [Suspect]
     Active Substance: CIPROFLOXACIN
     Indication: BRONCHITIS
     Dosage: STARTING WITH 250 MG, 2015 NO LONGER EFFECTIVE, INCREASING TO 500 MG
     Dates: start: 2012, end: 2017

REACTIONS (8)
  - Paraesthesia [Recovered/Resolved with Sequelae]
  - Muscle disorder [Recovered/Resolved with Sequelae]
  - Tenotomy [Unknown]
  - Gait disturbance [Recovered/Resolved with Sequelae]
  - Diabetic neuropathy [Recovered/Resolved with Sequelae]
  - Tendon rupture [Recovered/Resolved with Sequelae]
  - Tendon discomfort [Recovered/Resolved with Sequelae]
  - Joint swelling [Recovered/Resolved with Sequelae]

NARRATIVE: CASE EVENT DATE: 2016
